FAERS Safety Report 6558022-0 (Version None)
Quarter: 2010Q1

REPORT INFORMATION
  Report Type: 
  Country: None (occurrence: None)
  Receive Date: 20100129
  Receipt Date: 20100119
  Transmission Date: 20100710
  Serious: Yes (Hospitalization)
  Sender: FDA-Public Use
  Company Number: US-ELI_LILLY_AND_COMPANY-US201001004563

PATIENT
  Sex: Male

DRUGS (14)
  1. CYMBALTA [Suspect]
     Indication: MAJOR DEPRESSION
     Dosage: 30 MG, DAILY (1/D)
     Dates: start: 20091121, end: 20091220
  2. CYMBALTA [Suspect]
     Dosage: 60 MG, DAILY (1/D)
     Dates: start: 20091221, end: 20100106
  3. MARIJUANA [Concomitant]
  4. OXYCONTIN [Concomitant]
  5. NORCO [Concomitant]
  6. ABILIFY [Concomitant]
  7. ZYVOX [Concomitant]
  8. LYRICA [Concomitant]
  9. ASPIRIN [Concomitant]
  10. DETROL LA [Concomitant]
  11. ATENOLOL [Concomitant]
  12. HYDROCHLOROTHIAZIDE [Concomitant]
  13. FLOMAX [Concomitant]
  14. PLAVIX [Concomitant]

REACTIONS (2)
  - CEREBROVASCULAR ACCIDENT [None]
  - UNRESPONSIVE TO STIMULI [None]
